FAERS Safety Report 4295057-5 (Version None)
Quarter: 2004Q1

REPORT INFORMATION
  Report Type: 
  Country: None (occurrence: None)
  Receive Date: 20040211
  Receipt Date: 20040203
  Transmission Date: 20041129
  Serious: Yes (Hospitalization)
  Sender: FDA-Public Use
  Company Number: 2004197513FR

PATIENT
  Age: 51 Year
  Sex: Male

DRUGS (10)
  1. ADRIBLASTINE (DOXORUBIDCIN HYDROCHLORIDE) POWDER, STERILE [Suspect]
     Dosage: 50 MG, CYCLIC, IV
     Route: 042
     Dates: start: 20031202, end: 20031202
  2. ONCOVIN [Suspect]
     Dosage: 1.5 MG, CYCLIC, IV
     Route: 042
     Dates: start: 20031202, end: 20031202
  3. CYCLOPHOSPHAMIDE [Suspect]
     Dosage: 1000 MG, CYCLIC, IV
     Route: 042
     Dates: start: 20031202, end: 20031202
  4. HALDOL [Concomitant]
  5. TRANXENE [Concomitant]
  6. PARKINANE (TRIHEXYPHENIDYL HYDROCHLORIDE) [Concomitant]
  7. MOPRAL [Concomitant]
  8. PREDNISOLONE [Concomitant]
  9. TRAMADOL [Concomitant]
  10. SPASFON (PHLOROGLUCINOL, TRIMETHYLPHLOROGLUCINOL) [Concomitant]

REACTIONS (3)
  - FEBRILE BONE MARROW APLASIA [None]
  - LEUKOPENIA [None]
  - THROMBOCYTOPENIA [None]
